FAERS Safety Report 8173410-7 (Version None)
Quarter: 2012Q1

REPORT INFORMATION
  Report Type: 
  Country: None (occurrence: None)
  Receive Date: 20120229
  Receipt Date: 20120217
  Transmission Date: 20120608
  Serious: Yes (Hospitalization)
  Sender: FDA-Public Use
  Company Number: FR-JNJFOC-20120212816

PATIENT
  Age: 80 Year
  Sex: Female

DRUGS (5)
  1. TRAMADOL HCL [Suspect]
     Indication: PRODUCT USED FOR UNKNOWN INDICATION
     Route: 048
     Dates: end: 20111102
  2. FORTEO [Concomitant]
     Indication: OSTEOPOROSIS
     Route: 042
  3. PROTELOS [Suspect]
     Indication: OSTEOPOROSIS
     Route: 048
     Dates: end: 20111102
  4. VITAMIN D [Concomitant]
     Indication: OSTEOPOROSIS
     Route: 048
  5. ACETAMINOPHEN [Suspect]
     Indication: PRODUCT USED FOR UNKNOWN INDICATION
     Route: 048
     Dates: end: 20111102

REACTIONS (1)
  - LUMBAR VERTEBRAL FRACTURE [None]
